FAERS Safety Report 7768649-6 (Version None)
Quarter: 2011Q3

REPORT INFORMATION
  Report Type: 
  Country: None (occurrence: None)
  Receive Date: 20110922
  Receipt Date: 20101230
  Transmission Date: 20111222
  Serious: No
  Sender: FDA-Public Use
  Company Number: US-ASTRAZENECA-2011SE00217

PATIENT
  Age: 40 Year
  Sex: Male
  Weight: 117.9 kg

DRUGS (1)
  1. SEROQUEL [Suspect]
     Indication: BIPOLAR DISORDER
     Route: 048

REACTIONS (5)
  - DIABETES MELLITUS [None]
  - DRUG ABUSER [None]
  - WEIGHT INCREASED [None]
  - DEPRESSION [None]
  - AFFECT LABILITY [None]
